FAERS Safety Report 17570738 (Version 1)
Quarter: 2020Q1

REPORT INFORMATION
  Report Type: Spontaneous
  Country: US (occurrence: US)
  Receive Date: 20200323
  Receipt Date: 20200323
  Transmission Date: 20200409
  Serious: No
  Sender: FDA-Public Use
  Company Number: US-SUN PHARMACEUTICAL INDUSTRIES LTD-2019R1-208389

PATIENT
  Sex: Female

DRUGS (3)
  1. FEXOFENADINE/PSEUDOEPHEDRINE [Suspect]
     Active Substance: FEXOFENADINE\PSEUDOEPHEDRINE
     Indication: NASOPHARYNGITIS
     Dosage: 3 TABLETS
     Route: 065
  2. FEXOFENADINE/PSEUDOEPHEDRINE [Suspect]
     Active Substance: FEXOFENADINE\PSEUDOEPHEDRINE
     Indication: RHINORRHOEA
  3. FEXOFENADINE/PSEUDOEPHEDRINE [Suspect]
     Active Substance: FEXOFENADINE\PSEUDOEPHEDRINE
     Indication: SNEEZING

REACTIONS (3)
  - Drug ineffective [Unknown]
  - Hypoacusis [Unknown]
  - Ear congestion [Unknown]
